FAERS Safety Report 17543152 (Version 1)
Quarter: 2020Q1

REPORT INFORMATION
  Report Type: Spontaneous
  Country: US (occurrence: US)
  Receive Date: 20200316
  Receipt Date: 20200316
  Transmission Date: 20200409
  Serious: Yes (Other)
  Sender: FDA-Public Use
  Company Number: US-ABBVIE-20K-163-3320141-00

PATIENT
  Sex: Female

DRUGS (1)
  1. ORILISSA [Suspect]
     Active Substance: ELAGOLIX SODIUM
     Indication: ENDOMETRIOSIS
     Route: 048

REACTIONS (7)
  - Muscle spasms [Unknown]
  - Fatigue [Unknown]
  - Intentional self-injury [Unknown]
  - Suicidal ideation [Unknown]
  - Hypophagia [Unknown]
  - Depression [Unknown]
  - Nausea [Unknown]
